FAERS Safety Report 12677194 (Version 1)
Quarter: 2016Q3

REPORT INFORMATION
  Report Type: Spontaneous
  Country: JP (occurrence: JP)
  Receive Date: 20160823
  Receipt Date: 20160823
  Transmission Date: 20161109
  Serious: Yes (Other)
  Sender: FDA-Public Use
  Company Number: JP-009507513-1608JPN011273

PATIENT
  Age: 55 Year
  Sex: Male
  Weight: 71.1 kg

DRUGS (3)
  1. PEGINTRON [Suspect]
     Active Substance: PEGINTERFERON ALFA-2B
     Indication: ADJUVANT THERAPY
     Dosage: 6 MICROGRAM PER KILOGRAM, QW
     Route: 058
     Dates: start: 20150727, end: 20150806
  2. LOXOPROFEN [Concomitant]
     Active Substance: LOXOPROFEN
     Indication: PROPHYLAXIS
     Dosage: UNK, UNTIL 3 TIMES A DAY AT THE ONSET OF PYREXIA
     Route: 048
     Dates: start: 20150729, end: 20150806
  3. MARZULENE-S [Concomitant]
     Active Substance: SODIUM GUALENATE
     Indication: PROPHYLAXIS
     Dosage: UNK; WHEN LOXOPROFEN (REPORTED AS ^LOXONIN^) WAS TAKEN
     Route: 048
     Dates: start: 20150729, end: 20150806

REACTIONS (3)
  - Leukopenia [Recovered/Resolved]
  - Pyrexia [Recovered/Resolved]
  - Neutropenia [Recovered/Resolved]

NARRATIVE: CASE EVENT DATE: 20150727
